FAERS Safety Report 5975140-6 (Version None)
Quarter: 2008Q4

REPORT INFORMATION
  Report Type: 
  Country: None (occurrence: None)
  Receive Date: 20081202
  Receipt Date: 20081127
  Transmission Date: 20090506
  Serious: Yes (Hospitalization)
  Sender: FDA-Public Use
  Company Number: JP-BRISTOL-MYERS SQUIBB COMPANY-14424253

PATIENT

DRUGS (1)
  1. TAXOL [Suspect]
     Indication: NEOPLASM MALIGNANT
     Route: 041

REACTIONS (1)
  - NEPHROTIC SYNDROME [None]
